FAERS Safety Report 8015386-9 (Version None)
Quarter: 2011Q4

REPORT INFORMATION
  Report Type: 
  Country: None (occurrence: None)
  Receive Date: 20111230
  Receipt Date: 20111220
  Transmission Date: 20120403
  Serious: Yes (Hospitalization)
  Sender: FDA-Public Use
  Company Number: US-ASTELLAS-2011US008215

PATIENT
  Sex: Male
  Weight: 62 kg

DRUGS (7)
  1. METOPROLOL TARTRATE [Concomitant]
     Indication: HYPERTENSION
     Dosage: 50 MG, BID
     Route: 048
     Dates: start: 20110101
  2. SUSPECT STUDY DRUG [Suspect]
     Indication: PRODUCT USED FOR UNKNOWN INDICATION
     Dosage: UNK
     Route: 065
  3. BENICAR [Concomitant]
     Indication: BLOOD PRESSURE INCREASED
     Dosage: 20 MG, TOTAL DOSE
     Route: 048
     Dates: start: 20111115, end: 20111115
  4. HUMULIN R [Concomitant]
     Indication: DIABETES MELLITUS
     Dosage: 20 U, UID/QD
     Route: 058
     Dates: start: 20110101
  5. CLONIDINE [Concomitant]
     Indication: HYPERTENSION
     Dosage: 0.1 MG, BID
     Route: 048
     Dates: start: 20110101
  6. ADENOSCAN [Suspect]
     Indication: SCAN MYOCARDIAL PERFUSION
     Dosage: 52.32 MG, TOTAL DOSE
     Route: 042
     Dates: start: 20111109, end: 20111109
  7. ENALAPRIL [Concomitant]
     Indication: HYPERTENSION
     Dosage: 10 MG, UID/QD
     Route: 048
     Dates: start: 20110101

REACTIONS (3)
  - CORONARY ARTERY DISEASE [None]
  - HYPERLIPIDAEMIA [None]
  - VENTRICULAR TACHYCARDIA [None]
